FAERS Safety Report 15468120 (Version 2)
Quarter: 2018Q4

REPORT INFORMATION
  Report Type: Spontaneous
  Country: US (occurrence: US)
  Receive Date: 20181005
  Receipt Date: 20181009
  Transmission Date: 20190204
  Serious: No
  Sender: FDA-Public Use
  Company Number: US-TELIGENT, INC-IGIL20180562

PATIENT
  Sex: Male

DRUGS (1)
  1. ECONAZOLE NITRATE CREAM 1% [Suspect]
     Active Substance: ECONAZOLE NITRATE
     Indication: TINEA PEDIS
     Dosage: UNKNOWN
     Route: 061

REACTIONS (1)
  - Drug ineffective [Recovering/Resolving]
